FAERS Safety Report 11704738 (Version 1)
Quarter: 2015Q4

REPORT INFORMATION
  Report Type: Spontaneous
  Country: US (occurrence: None)
  Receive Date: 20151105
  Receipt Date: 20151105
  Transmission Date: 20160304
  Serious: Yes (Other)
  Sender: FDA-Public Use
  Company Number: None

PATIENT
  Age: 66 Year
  Sex: Female

DRUGS (13)
  1. CLONAZEPAM (KLONOPIN) [Concomitant]
  2. FOSAMAX [Concomitant]
     Active Substance: ALENDRONATE SODIUM
  3. OXYBUTYNIN (DITROPAN XL) [Concomitant]
  4. BISACODYL (DULCOLAX) [Concomitant]
  5. HYDROCHLOROTHIAZIDE (ESIDRIX/HYDRODIURIL) [Concomitant]
  6. CHOLECALCIFEROL [Concomitant]
     Active Substance: CHOLECALCIFEROL
  7. AMPYRA [Suspect]
     Active Substance: DALFAMPRIDINE
     Indication: MULTIPLE SCLEROSIS
     Route: 048
     Dates: start: 201006
  8. HYDROCODONE-ACETAMINOPHEN (NORCO) [Concomitant]
  9. MOTRIN [Concomitant]
     Active Substance: IBUPROFEN
  10. PSYLLIUM SEED, SUGAR (FIBER THERAPY, PSYLLIUM) [Concomitant]
  11. DOCUSATE SODIUM (COLACE) [Concomitant]
  12. CEPHALEXIN (KEFLEX) [Concomitant]
  13. VITAMIN D3 [Concomitant]
     Active Substance: CHOLECALCIFEROL

REACTIONS (2)
  - Wheelchair user [None]
  - Drug effect decreased [None]

NARRATIVE: CASE EVENT DATE: 20151104
